FAERS Safety Report 5811849-2 (Version None)
Quarter: 2008Q3

REPORT INFORMATION
  Report Type: 
  Country: None (occurrence: None)
  Receive Date: 20080716
  Receipt Date: 20080714
  Transmission Date: 20090109
  Serious: Yes (Other)
  Sender: FDA-Public Use
  Company Number: FR-BRISTOL-MYERS SQUIBB COMPANY-14264105

PATIENT

DRUGS (1)
  1. DIDANOSINE [Suspect]
     Indication: HIV INFECTION

REACTIONS (2)
  - FANCONI SYNDROME [None]
  - OSTEOMALACIA [None]
